FAERS Safety Report 21410265 (Version 2)
Quarter: 2022Q4

REPORT INFORMATION
  Report Type: Spontaneous
  Country: FR (occurrence: FR)
  Receive Date: 20221005
  Receipt Date: 20221007
  Transmission Date: 20230113
  Serious: Yes (Other)
  Sender: FDA-Public Use
  Company Number: FR-CELLTRION INC.-2019FR023540

PATIENT

DRUGS (8)
  1. INFLIXIMAB [Suspect]
     Active Substance: INFLIXIMAB
     Indication: Crohn^s disease
     Dosage: 5 MG/KG AT WEEK 0, WEEK 4 AND WEEK 8 (INDUCTION REGIMEN)
     Route: 065
  2. INFLIXIMAB [Suspect]
     Active Substance: INFLIXIMAB
     Dosage: 5 MG/KG EVERY 8 WEEKS (MAINTENANCE REGIMEN)
     Route: 065
  3. INFLIXIMAB [Suspect]
     Active Substance: INFLIXIMAB
     Dosage: 5 MG/KG AT WEEK 8 (INDUCTION REGIMEN)
  4. INFLIXIMAB [Suspect]
     Active Substance: INFLIXIMAB
     Dosage: UNKNOWN, INITIAL
  5. INFLIXIMAB [Suspect]
     Active Substance: INFLIXIMAB
     Dosage: 5 MG/KG AT WEEK 4 (INDUCTION REGIMEN
  6. INFLIXIMAB [Suspect]
     Active Substance: INFLIXIMAB
     Dosage: 5 MG/KG  AT WEEK 0 (INDUCTION REGIMEN)
  7. DEXCHLORPHENIRAMINE [Concomitant]
     Active Substance: DEXCHLORPHENIRAMINE
     Indication: Premedication
  8. HYDROCORTISONE [Concomitant]
     Active Substance: HYDROCORTISONE
     Indication: Premedication

REACTIONS (20)
  - Infusion related reaction [Unknown]
  - Infection [Unknown]
  - Infestation [Unknown]
  - Hepatobiliary disease [Unknown]
  - Drug intolerance [Unknown]
  - Musculoskeletal disorder [Unknown]
  - Connective tissue disorder [Unknown]
  - Mediastinal disorder [Unknown]
  - Skin disorder [Unknown]
  - Nervous system disorder [Unknown]
  - Gastrointestinal disorder [Unknown]
  - Respiratory disorder [Unknown]
  - Cardiac disorder [Unknown]
  - Renal disorder [Unknown]
  - Adverse event [Unknown]
  - Maternal exposure before pregnancy [Unknown]
  - Drug specific antibody present [Unknown]
  - Loss of therapeutic response [Unknown]
  - Off label use [Unknown]
  - Incorrect drug administration rate [Unknown]
